FAERS Safety Report 10232961 (Version 1)
Quarter: 2014Q2

REPORT INFORMATION
  Report Type: Spontaneous
  Country: US (occurrence: US)
  Receive Date: 20140612
  Receipt Date: 20140612
  Transmission Date: 20141212
  Serious: No
  Sender: FDA-Public Use
  Company Number: US-009507513-1404USA003505

PATIENT
  Sex: Female

DRUGS (1)
  1. COPPERTONE DRY OIL CONTINOUS SPRAY SPF 15 [Suspect]
     Indication: PRODUCT USED FOR UNKNOWN INDICATION
     Dosage: UNK, UNKNOWN
     Route: 061

REACTIONS (2)
  - Sticky skin [Unknown]
  - Product quality issue [Unknown]
